FAERS Safety Report 5633232-5 (Version None)
Quarter: 2008Q1

REPORT INFORMATION
  Report Type: 
  Country: None (occurrence: None)
  Receive Date: 20080215
  Receipt Date: 20080208
  Transmission Date: 20080703
  Serious: Yes (Death, Life-Threatening, Hospitalization)
  Sender: FDA-Public Use
  Company Number: TCI2007A05864

PATIENT
  Age: 67 Year
  Sex: Male

DRUGS (6)
  1. LANSOPRAZOLE [Suspect]
     Indication: REFLUX OESOPHAGITIS
     Dosage: 30 MG (30 MG, 1 IN 1 D)  PER ORAL
     Route: 048
     Dates: start: 20070823, end: 20071019
  2. ALLOPURINOL TAB [Suspect]
     Indication: HYPERURICAEMIA
     Dosage: 2 TAB. (1 TAB.,2 IN 1 D) PER ORAL
     Route: 048
     Dates: start: 20070310, end: 20071019
  3. OPALMON (LIMAPROST) (TABLETS) [Concomitant]
  4. LASIX [Concomitant]
  5. METHYCOBAL (MECOBALAMIN)(TABLETS) [Concomitant]
  6. MUCOSTA (REBAMIPIDE) (TABLETS) [Suspect]

REACTIONS (17)
  - ANAEMIA MACROCYTIC [None]
  - APLASTIC ANAEMIA [None]
  - BONE MARROW FAILURE [None]
  - BRAIN OEDEMA [None]
  - CEREBRAL HAEMORRHAGE [None]
  - CEREBRAL INFARCTION [None]
  - CEREBRAL VENTRICLE DILATATION [None]
  - DEHYDRATION [None]
  - FUNGUS SEROLOGY TEST POSITIVE [None]
  - GASTRITIS [None]
  - LUNG INFILTRATION [None]
  - MOUTH BREATHING [None]
  - ORAL INTAKE REDUCED [None]
  - PERIODONTITIS [None]
  - REFLUX OESOPHAGITIS [None]
  - RESPIRATORY ARREST [None]
  - STOMATITIS [None]
